FAERS Safety Report 4703809-X (Version None)
Quarter: 2005Q2

REPORT INFORMATION
  Report Type: 
  Country: None (occurrence: None)
  Receive Date: 20050630
  Receipt Date: 20050621
  Transmission Date: 20051028
  Serious: Yes (Hospitalization)
  Sender: FDA-Public Use
  Company Number: BE-GLAXOSMITHKLINE-B0385344A

PATIENT
  Age: 76 Year
  Sex: Female

DRUGS (1)
  1. NIQUITIN CQ 4MG LOZENGE [Suspect]
     Indication: SMOKING CESSATION THERAPY
     Route: 002

REACTIONS (2)
  - DYSPNOEA [None]
  - PULMONARY HYPERTENSION [None]
